FAERS Safety Report 6819296-1 (Version None)
Quarter: 2010Q3

REPORT INFORMATION
  Report Type: 
  Country: None (occurrence: None)
  Receive Date: 20100707
  Receipt Date: 20100630
  Transmission Date: 20110219
  Serious: Yes (Death, Other)
  Sender: FDA-Public Use
  Company Number: IT-CELGENEUS-083-21880-09042031

PATIENT

DRUGS (8)
  1. REVLIMID [Suspect]
     Indication: MULTIPLE MYELOMA
     Route: 048
  2. REVLIMID [Suspect]
     Route: 048
  3. REVLIMID [Suspect]
     Dosage: 20MG-15MG
     Route: 048
  4. REVLIMID [Suspect]
     Route: 048
  5. REVLIMID [Suspect]
     Dosage: 15MG-5MG
     Route: 048
  6. PREDNISONE TAB [Suspect]
     Indication: MULTIPLE MYELOMA
     Route: 065
  7. ASPIRIN [Concomitant]
     Indication: ANTICOAGULANT THERAPY
     Route: 065
  8. NEUPOGEN [Concomitant]
     Indication: PRODUCT USED FOR UNKNOWN INDICATION
     Route: 065

REACTIONS (23)
  - BLOOD CREATININE INCREASED [None]
  - CONSTIPATION [None]
  - DEATH [None]
  - DEEP VEIN THROMBOSIS [None]
  - DIARRHOEA [None]
  - DISEASE PROGRESSION [None]
  - FATIGUE [None]
  - GASTROENTERITIS [None]
  - HAEMORRHAGE [None]
  - HERPES ZOSTER [None]
  - HYPERGLYCAEMIA [None]
  - INFECTION [None]
  - MUCOSAL INFLAMMATION [None]
  - NAUSEA [None]
  - NEUROPATHY PERIPHERAL [None]
  - NEUROTOXICITY [None]
  - NEUTROPENIA [None]
  - PANCYTOPENIA [None]
  - PNEUMONIA [None]
  - PYREXIA [None]
  - RASH [None]
  - THROMBOCYTOPENIA [None]
  - VOMITING [None]
